FAERS Safety Report 7077889-3 (Version None)
Quarter: 2010Q4

REPORT INFORMATION
  Report Type: 
  Country: None (occurrence: None)
  Receive Date: 20101101
  Receipt Date: 20101019
  Transmission Date: 20110411
  Serious: Yes (Hospitalization, Other)
  Sender: FDA-Public Use
  Company Number: US-ELI_LILLY_AND_COMPANY-US201010002435

PATIENT
  Sex: Female
  Weight: 86.621 kg

DRUGS (21)
  1. CYMBALTA [Suspect]
     Dosage: 30 MG, DAILY (1/D)
     Route: 048
     Dates: start: 20090604
  2. CYMBALTA [Suspect]
     Dosage: 20 MG, DAILY (1/D)
     Route: 048
     Dates: end: 20090717
  3. CETUXIMAB [Concomitant]
     Indication: NON-SMALL CELL LUNG CANCER
     Dosage: 36 D/F, UNK
     Route: 042
     Dates: start: 20081010, end: 20090622
  4. TESSALON [Concomitant]
     Dosage: 100 MG, 3/D
     Route: 048
     Dates: start: 20080929
  5. LISINOPRIL [Concomitant]
     Indication: HYPERTENSION
     Dosage: UNK, UNK
     Dates: start: 20081126
  6. GABAPENTIN [Concomitant]
     Dosage: 300 MG, 3/D
     Route: 048
     Dates: start: 20090102
  7. MINOCIN [Concomitant]
     Dosage: 100 MG, 2/D
     Route: 048
     Dates: start: 20090122
  8. NORVASC [Concomitant]
     Indication: HYPERTENSION
     Dosage: UNK, UNK
     Dates: start: 20090409
  9. MAGNESIUM [Concomitant]
     Indication: MEDICAL DIET
     Dosage: 400 MG, DAILY (1/D)
     Route: 048
     Dates: start: 20090513
  10. MAGNESIUM [Concomitant]
     Dosage: 500 MG, DAILY (1/D)
     Route: 048
  11. CLEOCIN [Concomitant]
     Route: 061
     Dates: start: 20090622
  12. HYTONE [Concomitant]
     Dosage: UNK, AS NEEDED
     Route: 061
     Dates: start: 20090625
  13. SENOKOT [Concomitant]
     Indication: CONSTIPATION
     Dosage: UNK, AS NEEDED
     Route: 048
  14. COMPAZINE [Concomitant]
     Indication: NAUSEA
     Dosage: 10 MG, AS NEEDED
     Route: 048
  15. DECADRON [Concomitant]
     Dosage: 4 MG, UNK
     Route: 048
  16. SYNTHROID [Concomitant]
     Indication: HYPOTHYROIDISM
     Dosage: 125 UG, EACH MORNING
     Route: 048
  17. NORCO [Concomitant]
     Indication: PAIN
     Dosage: 5 MG, AS NEEDED
     Route: 048
     Dates: start: 20090628
  18. PREDNISONE [Concomitant]
  19. LOVENOX [Concomitant]
     Dosage: 80 MG, 2/D
     Route: 058
  20. TYLENOL                                 /SCH/ [Concomitant]
     Dosage: 650 MG, AS NEEDED
     Route: 048
  21. SODIUM CHLORIDE [Concomitant]
     Dosage: 3 ML, AS NEEDED
     Route: 042

REACTIONS (13)
  - BLOOD CULTURE POSITIVE [None]
  - COUGH [None]
  - DEHYDRATION [None]
  - DYSPNOEA [None]
  - FALL [None]
  - INTERNATIONAL NORMALISED RATIO DECREASED [None]
  - LOSS OF CONSCIOUSNESS [None]
  - NASAL CONGESTION [None]
  - NAUSEA [None]
  - OROPHARYNGEAL PAIN [None]
  - PARAESTHESIA [None]
  - PROTHROMBIN TIME PROLONGED [None]
  - VOMITING [None]
